FAERS Safety Report 6314515-2 (Version None)
Quarter: 2009Q3

REPORT INFORMATION
  Report Type: 
  Country: None (occurrence: None)
  Receive Date: 20090817
  Receipt Date: 20090804
  Transmission Date: 20100115
  Serious: Yes (Hospitalization)
  Sender: FDA-Public Use
  Company Number: 1000008177

PATIENT
  Age: 38 Year
  Sex: Male

DRUGS (2)
  1. CITALOPRAM HYDROBROMIDE [Suspect]
     Indication: DEPRESSION
     Dosage: ORAL
     Route: 048
  2. ALCOHOL [Suspect]
     Dosage: ORAL
     Route: 048
     Dates: start: 20090713, end: 20090713

REACTIONS (6)
  - ANTICHOLINERGIC SYNDROME [None]
  - ASPARTATE AMINOTRANSFERASE INCREASED [None]
  - GAMMA-GLUTAMYLTRANSFERASE INCREASED [None]
  - HEART RATE INCREASED [None]
  - MEAN CELL HAEMOGLOBIN INCREASED [None]
  - MEAN CELL VOLUME INCREASED [None]
